FAERS Safety Report 8176220-X (Version None)
Quarter: 2012Q1

REPORT INFORMATION
  Report Type: 
  Country: None (occurrence: None)
  Receive Date: 20120117
  Receipt Date: 20111122
  Transmission Date: 20120608
  Serious: Yes (Other)
  Sender: FDA-Public Use
  Company Number: 2011005276

PATIENT
  Age: 54 Year
  Sex: Female
  Weight: 116.1208 kg

DRUGS (5)
  1. ZOLOFT [Concomitant]
  2. ACIPHEX [Concomitant]
  3. ZYRTEC [Concomitant]
  4. NUVIGIL [Suspect]
     Indication: SLEEP APNOEA SYNDROME
     Dosage: 75 MG (75 MG,1 IN 1 D),ORAL
     Route: 048
     Dates: start: 20110927, end: 20110929
  5. ZANTAC [Concomitant]

REACTIONS (3)
  - BLOOD PRESSURE INCREASED [None]
  - INSOMNIA [None]
  - PALPITATIONS [None]
